FAERS Safety Report 6344177-X (Version None)
Quarter: 2009Q3

REPORT INFORMATION
  Report Type: 
  Country: None (occurrence: None)
  Receive Date: 20090903
  Receipt Date: 20090817
  Transmission Date: 20100115
  Serious: Yes (Hospitalization)
  Sender: FDA-Public Use
  Company Number: 2009-196599-NL

PATIENT
  Age: 44 Year
  Sex: Female
  Weight: 54 kg

DRUGS (5)
  1. NUVARING [Suspect]
     Indication: CONTRACEPTION
     Dosage: 1 DF;QM
     Dates: start: 20060121, end: 20090418
  2. NUVARING [Suspect]
     Indication: METRORRHAGIA
     Dosage: 1 DF;QM
     Dates: start: 20060121, end: 20090418
  3. ADVIL [Concomitant]
  4. MOTRIN [Concomitant]
  5. TYLENOL (CAPLET) [Concomitant]

REACTIONS (7)
  - ABDOMINAL PAIN UPPER [None]
  - INFLUENZA [None]
  - PLEURITIC PAIN [None]
  - PROTEIN S DEFICIENCY [None]
  - PULMONARY EMBOLISM [None]
  - PULMONARY INFARCTION [None]
  - THYROID NEOPLASM [None]
